FAERS Safety Report 4701354-9 (Version None)
Quarter: 2005Q2

REPORT INFORMATION
  Report Type: 
  Country: None (occurrence: None)
  Receive Date: 20050627
  Receipt Date: 20050614
  Transmission Date: 20051028
  Serious: Yes (Hospitalization, Other)
  Sender: FDA-Public Use
  Company Number: GXKR2005IT01223

PATIENT
  Age: 10 Year
  Sex: Male
  Weight: 27 kg

DRUGS (1)
  1. ISONIAZID [Suspect]
     Indication: TUBERCULIN TEST POSITIVE
     Dosage: 300 MG, ORAL
     Route: 048
     Dates: start: 20010401, end: 20010701

REACTIONS (13)
  - DUODENAL ULCER [None]
  - DUODENAL ULCER HAEMORRHAGE [None]
  - ENCEPHALOPATHY [None]
  - GENERAL PHYSICAL HEALTH DETERIORATION [None]
  - GRAFT DYSFUNCTION [None]
  - GRAFT THROMBOSIS [None]
  - HEPATIC FAILURE [None]
  - LETHARGY [None]
  - LIVER TRANSPLANT [None]
  - LIVER TRANSPLANT REJECTION [None]
  - POST PROCEDURAL COMPLICATION [None]
  - PULMONARY TUBERCULOSIS [None]
  - SURGICAL PROCEDURE REPEATED [None]
